FAERS Safety Report 8208610-0 (Version None)
Quarter: 2012Q1

REPORT INFORMATION
  Report Type: 
  Country: None (occurrence: None)
  Receive Date: 20120314
  Receipt Date: 20120309
  Transmission Date: 20120608
  Serious: Yes (Other)
  Sender: FDA-Public Use
  Company Number: JP-GLAXOSMITHKLINE-B0787987A

PATIENT
  Sex: Female

DRUGS (1)
  1. FLUTICASONE PROPIONATE/SALMETEROL [Suspect]
     Indication: PRODUCT USED FOR UNKNOWN INDICATION
     Route: 055

REACTIONS (4)
  - EOSINOPHIL COUNT DECREASED [None]
  - ALLERGIC GRANULOMATOUS ANGIITIS [None]
  - RHEUMATOID FACTOR POSITIVE [None]
  - PAIN IN EXTREMITY [None]
